FAERS Safety Report 24199549 (Version 1)
Quarter: 2024Q3

REPORT INFORMATION
  Report Type: Spontaneous
  Country: FR (occurrence: FR)
  Receive Date: 20240812
  Receipt Date: 20240812
  Transmission Date: 20241016
  Serious: No
  Sender: UCB
  Company Number: FR-UCBSA-2024039112

PATIENT
  Age: 53 Year
  Sex: Female

DRUGS (1)
  1. NEUPRO [Suspect]
     Active Substance: ROTIGOTINE
     Indication: Product used for unknown indication
     Dosage: 6 MILLIGRAM, ONCE DAILY (QD) (1 PATCH /24H)
     Route: 062

REACTIONS (2)
  - Product dose omission issue [Unknown]
  - Product adhesion issue [Unknown]
